FAERS Safety Report 4787538-2 (Version None)
Quarter: 2005Q4

REPORT INFORMATION
  Report Type: 
  Country: None (occurrence: None)
  Receive Date: 20051004
  Receipt Date: 20050922
  Transmission Date: 20060501
  Serious: Yes (Hospitalization)
  Sender: FDA-Public Use
  Company Number: GB-JNJFOC-20050905203

PATIENT
  Age: 59 Year
  Sex: Male

DRUGS (12)
  1. REMICADE [Suspect]
     Indication: RHEUMATOID ARTHRITIS
     Route: 042
  2. DICLOFENAC [Concomitant]
     Route: 065
  3. LEFLUNOMIDE [Concomitant]
     Route: 065
  4. METHOTREXATE [Concomitant]
     Route: 065
  5. FOLIC ACID [Concomitant]
     Route: 065
  6. PREDNISOLONE [Concomitant]
     Route: 065
  7. LANSOPRAZOLE [Concomitant]
     Route: 065
  8. FOSAMAX [Concomitant]
     Route: 065
  9. GABAPENTIN [Concomitant]
     Route: 065
  10. TRAMADOL [Concomitant]
     Route: 065
  11. BECLOMETHASONE DIPROPIONATE [Concomitant]
     Route: 055
  12. ALBUTEROL SULFATE HFA [Concomitant]
     Route: 055

REACTIONS (2)
  - PNEUMONIA LEGIONELLA [None]
  - PULMONARY EMBOLISM [None]
